FAERS Safety Report 6114741-1 (Version None)
Quarter: 2009Q1

REPORT INFORMATION
  Report Type: 
  Country: None (occurrence: None)
  Receive Date: 20090313
  Receipt Date: 20090309
  Transmission Date: 20090719
  Serious: Yes (Life-Threatening, Other)
  Sender: FDA-Public Use
  Company Number: PHHY2008DE32335

PATIENT
  Sex: Female
  Weight: 73 kg

DRUGS (6)
  1. RASILEZ [Suspect]
     Indication: HYPERTENSION
     Dosage: 150 MG DAILY
     Dates: start: 20081207, end: 20091210
  2. RASILEZ [Suspect]
     Indication: CORONARY ARTERY DISEASE
  3. LEVOTHYROXINE SODIUM [Concomitant]
     Indication: THYROIDECTOMY
     Dosage: 150 UG/DAY
     Route: 048
     Dates: start: 19990101
  4. ASPIRIN [Concomitant]
     Indication: MYOCARDIAL INFARCTION
     Dosage: 100 MG/DAY
     Route: 048
     Dates: start: 20040101
  5. AIDA [Concomitant]
     Dosage: UNK
     Route: 048
  6. DILTIAZEM [Concomitant]

REACTIONS (6)
  - ACTIVITIES OF DAILY LIVING IMPAIRED [None]
  - DELUSIONAL PERCEPTION [None]
  - DIZZINESS [None]
  - RASH ERYTHEMATOUS [None]
  - SYNCOPE [None]
  - THERMAL BURN [None]
